FAERS Safety Report 8859048 (Version 1)
Quarter: 2012Q4

REPORT INFORMATION
  Report Type: 
  Country: US (occurrence: US)
  Receive Date: 20121024
  Receipt Date: 20121024
  Transmission Date: 20130627
  Serious: Yes (Life-Threatening, Hospitalization)
  Sender: FDA-Public Use
  Company Number: US-BAYER-2012-110580

PATIENT
  Age: 36 Year
  Sex: Female

DRUGS (13)
  1. YAZ [Suspect]
     Indication: PREMENSTRUAL DYSPHORIC DISORDER
  2. YASMIN [Suspect]
     Indication: PREMENSTRUAL DYSPHORIC DISORDER
  3. FLOVENT [Concomitant]
  4. FLUOXETINE [Concomitant]
  5. LISINOPRIL [Concomitant]
  6. METFORMIN [Concomitant]
  7. CITALOPRAM [Concomitant]
  8. ADDERALL [Concomitant]
  9. ZYRTEC [Concomitant]
  10. PROZAC [Concomitant]
  11. FLONASE [Concomitant]
  12. ZOCOR [Concomitant]
  13. INSULIN [Concomitant]
     Indication: DIABETES

REACTIONS (2)
  - Pulmonary embolism [Recovered/Resolved]
  - Deep vein thrombosis [None]
